FAERS Safety Report 8571219-3 (Version None)
Quarter: 2012Q3

REPORT INFORMATION
  Report Type: 
  Country: None (occurrence: None)
  Receive Date: 20120730
  Receipt Date: 20120730
  Transmission Date: 20120928
  Serious: Yes (Hospitalization)
  Sender: FDA-Public Use
  Company Number: None

PATIENT
  Sex: Male
  Weight: 83.3 kg

DRUGS (2)
  1. PACLITAXEL [Suspect]
     Dates: start: 20120712
  2. CARBOPLATIN [Suspect]
     Dates: start: 20120712

REACTIONS (2)
  - OROPHARYNGEAL PAIN [None]
  - FEBRILE NEUTROPENIA [None]
